FAERS Safety Report 23193872 (Version 1)
Quarter: 2023Q4

REPORT INFORMATION
  Report Type: Spontaneous
  Country: US (occurrence: US)
  Receive Date: 20231116
  Receipt Date: 20231116
  Transmission Date: 20240110
  Serious: Yes (Other)
  Sender: FDA-Public Use
  Company Number: US-ACERUSPHRM-2023-US-000390

PATIENT
  Age: 52 Year
  Sex: 0

DRUGS (2)
  1. TESTOSTERONE [Suspect]
     Active Substance: TESTOSTERONE
     Indication: Product used for unknown indication
     Route: 030
  2. TAMOXIFEN [Concomitant]
     Active Substance: TAMOXIFEN
     Indication: Intraductal proliferative breast lesion

REACTIONS (1)
  - Intraductal proliferative breast lesion [Recovering/Resolving]
